FAERS Safety Report 12420938 (Version 5)
Quarter: 2016Q3

REPORT INFORMATION
  Report Type: Report from Study
  Country: US (occurrence: US)
  Receive Date: 20160531
  Receipt Date: 20160822
  Transmission Date: 20161109
  Serious: Yes (Hospitalization)
  Sender: FDA-Public Use
  Company Number: US-JNJFOC-20160524248

PATIENT
  Age: 84 Year
  Sex: Male

DRUGS (9)
  1. IMBRUVICA [Suspect]
     Active Substance: IBRUTINIB
     Indication: CHRONIC LYMPHOCYTIC LEUKAEMIA
     Route: 048
     Dates: start: 20160520
  2. FINASTERIDE. [Concomitant]
     Active Substance: FINASTERIDE
  3. SALMO SALAR OIL [Concomitant]
  4. IMBRUVICA [Suspect]
     Active Substance: IBRUTINIB
     Indication: CHRONIC LYMPHOCYTIC LEUKAEMIA
     Route: 048
     Dates: start: 20160513, end: 20160517
  5. METROGEL [Concomitant]
     Active Substance: METRONIDAZOLE
  6. TAMSULOSIN [Concomitant]
     Active Substance: TAMSULOSIN
  7. ALLOPURINOL. [Concomitant]
     Active Substance: ALLOPURINOL
  8. GLUCOSAMINE CHONDROITIN SULFATE [Concomitant]
  9. VITAMIN D3 [Concomitant]
     Active Substance: CHOLECALCIFEROL

REACTIONS (10)
  - Peripheral swelling [Not Recovered/Not Resolved]
  - Renal impairment [Unknown]
  - Adverse event [Unknown]
  - Fall [Recovered/Resolved]
  - Decreased appetite [Unknown]
  - Pneumonia [Recovering/Resolving]
  - Diarrhoea [Recovered/Resolved]
  - Muscle strain [Unknown]
  - Adverse drug reaction [Unknown]
  - Ear discomfort [Unknown]

NARRATIVE: CASE EVENT DATE: 2016
